FAERS Safety Report 8592942-0 (Version None)
Quarter: 2012Q3

REPORT INFORMATION
  Report Type: 
  Country: None (occurrence: None)
  Receive Date: 20120814
  Receipt Date: 20120719
  Transmission Date: 20120928
  Serious: Yes (Disabling, Other)
  Sender: FDA-Public Use
  Company Number: AU-ROCHE-1035189

PATIENT
  Sex: Male
  Weight: 88 kg

DRUGS (4)
  1. PEGASYS [Suspect]
     Indication: HEPATITIS C
     Route: 058
     Dates: start: 20110812, end: 20120124
  2. RIBAVIRIN [Suspect]
     Indication: HEPATITIS C
     Route: 048
     Dates: start: 20110812, end: 20120128
  3. FUNGILIN [Concomitant]
     Indication: CANDIDIASIS
     Route: 048
     Dates: start: 20120117
  4. PRISTIQ [Concomitant]
     Indication: DEPRESSION
     Route: 048
     Dates: start: 20120101, end: 20120124

REACTIONS (1)
  - DEAFNESS NEUROSENSORY [None]
